FAERS Safety Report 4313004-4 (Version None)
Quarter: 2004Q1

REPORT INFORMATION
  Report Type: 
  Country: None (occurrence: None)
  Receive Date: 20040305
  Receipt Date: 20040305
  Transmission Date: 20041129
  Serious: Yes (Other)
  Sender: FDA-Public Use
  Company Number: None

PATIENT
  Age: 42 Year
  Sex: Female
  Weight: 68.0396 kg

DRUGS (2)
  1. NEXIUM [Suspect]
     Indication: GASTROOESOPHAGEAL REFLUX DISEASE
     Dosage: 1 A DAY ORAL
     Route: 048
     Dates: start: 20040203, end: 20040217
  2. PREVACID [Suspect]
     Indication: GASTROOESOPHAGEAL REFLUX DISEASE
     Dosage: 1 A DAY ORAL
     Route: 048
     Dates: start: 20030702, end: 20040202

REACTIONS (3)
  - ANXIETY [None]
  - ASTHENIA [None]
  - MUSCLE CRAMP [None]
